FAERS Safety Report 6195526-7 (Version None)
Quarter: 2009Q2

REPORT INFORMATION
  Report Type: 
  Country: None (occurrence: None)
  Receive Date: 20090519
  Receipt Date: 20090508
  Transmission Date: 20091009
  Serious: Yes (Other)
  Sender: FDA-Public Use
  Company Number: PHHY2009JP06871

PATIENT
  Age: 76 Year
  Sex: Female

DRUGS (8)
  1. TEGRETOL [Suspect]
     Indication: TRIGEMINAL NEURALGIA
     Dosage: 100 MG, UNK
     Route: 048
  2. TEGRETOL [Suspect]
     Dosage: 200 MG, UNK
     Route: 048
  3. TEGRETOL [Suspect]
     Dosage: 100 MG DAILY
     Route: 048
     Dates: start: 20090218
  4. TEGRETOL [Suspect]
     Dosage: 200 MG DAILY
     Dates: start: 20090408
  5. CEPHADOL [Concomitant]
  6. FAMOTIDINE [Concomitant]
  7. HALCION [Concomitant]
  8. VESICARE [Concomitant]

REACTIONS (2)
  - DELIRIUM [None]
  - DEMENTIA [None]
